FAERS Safety Report 20635913 (Version 1)
Quarter: 2022Q1

REPORT INFORMATION
  Report Type: Spontaneous
  Country: US (occurrence: US)
  Receive Date: 20220325
  Receipt Date: 20220325
  Transmission Date: 20220423
  Serious: Yes (Other)
  Sender: FDA-Public Use
  Company Number: US-MYLANLABS-2022M1021986

PATIENT
  Age: 43 Year
  Sex: Male

DRUGS (4)
  1. METHIMAZOLE [Suspect]
     Active Substance: METHIMAZOLE
     Indication: Thyroiditis
     Dosage: UNK
     Route: 065
     Dates: start: 2020, end: 2020
  2. PROPRANOLOL [Suspect]
     Active Substance: PROPRANOLOL HYDROCHLORIDE
     Indication: Thyroiditis
     Dosage: UNK
     Route: 065
     Dates: start: 2020
  3. CAMIDANLUMAB TESIRINE [Concomitant]
     Active Substance: CAMIDANLUMAB TESIRINE
     Indication: Hodgkin^s disease
     Dosage: 30 MICROGRAM/KILOGRAM, 3XW, 5 CYCLES
     Route: 042
     Dates: end: 2020
  4. DEXAMETHASONE [Concomitant]
     Active Substance: DEXAMETHASONE
     Indication: Premedication
     Dosage: 4 MILLIGRAM, BID PREMEDICATION WITH TRIAL INFUSIONS
     Route: 048
     Dates: start: 2020

REACTIONS (1)
  - Hypothyroidism [Recovering/Resolving]

NARRATIVE: CASE EVENT DATE: 20200101
